FAERS Safety Report 6315614-1 (Version None)
Quarter: 2009Q3

REPORT INFORMATION
  Report Type: 
  Country: None (occurrence: None)
  Receive Date: 20090818
  Receipt Date: 20090804
  Transmission Date: 20100115
  Serious: Yes (Other)
  Sender: FDA-Public Use
  Company Number: 001501

PATIENT

DRUGS (2)
  1. VIMPAT [Suspect]
  2. OXCARBAZEPINE [Concomitant]

REACTIONS (1)
  - THROMBOCYTOPENIA [None]
